FAERS Safety Report 25203288 (Version 1)
Quarter: 2025Q2

REPORT INFORMATION
  Report Type: Spontaneous
  Country: US (occurrence: None)
  Receive Date: 20250415
  Receipt Date: 20250415
  Transmission Date: 20250717
  Serious: Yes (Death)
  Sender: FDA-CTU
  Company Number: None

PATIENT
  Age: 75 Year
  Sex: Male

DRUGS (2)
  1. TACROLIMUS [Suspect]
     Active Substance: TACROLIMUS
     Indication: Renal transplant
     Dosage: 3 MG TWICE  DAY ORAL
     Route: 048
     Dates: start: 20220719, end: 20250404
  2. MYCOPHENOLIC ACID [Suspect]
     Active Substance: MYCOPHENOLIC ACID
     Indication: Renal transplant
     Dosage: 180 MG TWICE A DY ORAL?
     Route: 048
     Dates: start: 20220719, end: 20250404

REACTIONS (1)
  - Death [None]

NARRATIVE: CASE EVENT DATE: 20250404
